FAERS Safety Report 4760816-9 (Version None)
Quarter: 2005Q3

REPORT INFORMATION
  Report Type: 
  Country: None (occurrence: None)
  Receive Date: 20050901
  Receipt Date: 20050824
  Transmission Date: 20060218
  Serious: Yes (Life-Threatening)
  Sender: FDA-Public Use
  Company Number: 2005US-00673

PATIENT
  Sex: Female

DRUGS (1)
  1. CEFUROXIME AXETIL [Suspect]
     Indication: ANTIBIOTIC PROPHYLAXIS
     Dosage: INTRAVENOUS
     Route: 042

REACTIONS (16)
  - ARTERIOSPASM CORONARY [None]
  - BLOOD PRESSURE DECREASED [None]
  - CHEST PAIN [None]
  - CYANOSIS [None]
  - DRUG HYPERSENSITIVITY [None]
  - ERYTHEMA [None]
  - HEART RATE INCREASED [None]
  - HYPOTENSION [None]
  - MYOCARDIAL ISCHAEMIA [None]
  - PALLOR [None]
  - PERIORBITAL OEDEMA [None]
  - PRURITUS [None]
  - PULSE PRESSURE DECREASED [None]
  - RASH ERYTHEMATOUS [None]
  - TACHYCARDIA [None]
  - VOMITING [None]
